FAERS Safety Report 9916539 (Version 1)
Quarter: 2014Q1

REPORT INFORMATION
  Report Type: Spontaneous
  Country: IT (occurrence: None)
  Receive Date: 20140219
  Receipt Date: 20140219
  Transmission Date: 20141002
  Serious: Yes (Hospitalization)
  Sender: FDA-Public Use
  Company Number: 2014AP001390

PATIENT
  Age: 72 Year
  Sex: Female

DRUGS (6)
  1. LEVOFLOXACIN (LEVOFLOXACIN) [Suspect]
     Dosage: UNKNOWN; TOTAL, PO
     Route: 048
     Dates: start: 20131230, end: 20140108
  2. WARFARIN (WARFARIN) [Suspect]
     Indication: CEREBRAL ISCHAEMIA
     Dosage: UNKNOWN, TAB; PO; PRN
     Route: 048
     Dates: start: 20020101, end: 20140111
  3. MODURETIC (MODURETIC) [Concomitant]
  4. EUTIROX (LEVOTHYROXINE SODIUM) [Concomitant]
  5. ENALAPRIL MALEATE (ENALAPRIL MALEATE) [Concomitant]
  6. ANTINFLAMMATORY AGENTS, NON-STEROIDS (ANTINFLAMMATORY AGENTS, NON-STEROIDS) [Concomitant]

REACTIONS (2)
  - Hypocoagulable state [None]
  - Drug interaction [None]
